FAERS Safety Report 23323639 (Version 1)
Quarter: 2023Q4

REPORT INFORMATION
  Report Type: Spontaneous
  Country: US (occurrence: None)
  Receive Date: 20231220
  Receipt Date: 20231220
  Transmission Date: 20240110
  Serious: No
  Sender: FDA-Public Use
  Company Number: US-ROCHE-3433136

PATIENT
  Sex: Female

DRUGS (3)
  1. RITUXAN [Suspect]
     Active Substance: RITUXIMAB
     Indication: Multiple sclerosis
     Dosage: SHE RECEIVED SUBSEQUENT DOSES OF RITUXIMAB ON 05/APR/2021, 22/NOV/2021, 20/JUN/2022.
     Route: 065
     Dates: start: 20210322
  2. LIORESAL [Concomitant]
     Active Substance: BACLOFEN
  3. TOFRANIL [Concomitant]
     Active Substance: IMIPRAMINE HYDROCHLORIDE

REACTIONS (2)
  - Off label use [Unknown]
  - No adverse event [Unknown]
